FAERS Safety Report 9535572 (Version 1)
Quarter: 2013Q3

REPORT INFORMATION
  Report Type: Spontaneous
  Country: US (occurrence: US)
  Receive Date: 20130919
  Receipt Date: 20130919
  Transmission Date: 20140515
  Serious: No
  Sender: FDA-Public Use
  Company Number: US-B.I. PHARMACEUTICALS,INC./RIDGEFIELD-2013-BI-28465BP

PATIENT
  Sex: Female
  Weight: 88 kg

DRUGS (17)
  1. PRADAXA [Suspect]
     Indication: CEREBROVASCULAR ACCIDENT PROPHYLAXIS
     Dosage: 150 MG
     Route: 048
     Dates: start: 20130104
  2. PRADAXA [Suspect]
     Indication: ATRIAL FIBRILLATION
  3. ACIPHEX [Concomitant]
     Dosage: 20 MG
     Route: 048
  4. ALBUTEROL [Concomitant]
     Dosage: 6 MG
     Route: 048
  5. ALLOPURINOL [Concomitant]
     Dosage: 100 MG
     Route: 048
  6. AMBIEN [Concomitant]
     Dosage: 5 MG
     Route: 048
  7. BUMETANIDE [Concomitant]
     Dosage: 2 MG
     Route: 048
  8. DIGOXIN [Concomitant]
     Dosage: 250 MCG
     Route: 048
  9. MAGNESIUM OXIDE [Concomitant]
     Dosage: 800 MG
     Route: 048
  10. POTASSIUM CHLORIDE [Concomitant]
     Dosage: STRENGTH: 20 MEQ; DAILY DOSE: 80 MEQ
     Route: 048
  11. ROPINIROLE [Concomitant]
     Dosage: 5 MG
     Route: 048
  12. SPIRONOLACTONE [Concomitant]
     Dosage: 100 MG
     Route: 048
  13. SYNTHYROID [Concomitant]
     Dosage: 0.5 MG
     Route: 048
  14. VITAMIN D3 [Concomitant]
     Dosage: 2000 U
     Route: 048
  15. ZAROXOLYN [Concomitant]
     Dosage: 2.5 MG
     Route: 048
  16. METOPROLOL [Concomitant]
     Dosage: 75 MG
     Route: 048
  17. NEURONTIN [Concomitant]
     Dosage: 300 MG
     Route: 048

REACTIONS (2)
  - Embolism [Unknown]
  - Embolism [Unknown]
